FAERS Safety Report 21668617 (Version 2)
Quarter: 2022Q4

REPORT INFORMATION
  Report Type: Report from Study
  Country: US (occurrence: US)
  Receive Date: 20221201
  Receipt Date: 20221203
  Transmission Date: 20230112
  Serious: No
  Sender: FDA-Public Use
  Company Number: US-002147023-NVSC2022US279515

PATIENT
  Sex: Female

DRUGS (2)
  1. ENTRESTO [Interacting]
     Active Substance: SACUBITRIL\VALSARTAN
     Indication: Tachycardia
     Dosage: 49.51 MG
     Route: 065
  2. ENTRESTO [Interacting]
     Active Substance: SACUBITRIL\VALSARTAN
     Dosage: 97.103 MG, BID
     Route: 048

REACTIONS (2)
  - Tachycardia [Unknown]
  - Drug interaction [Unknown]
